FAERS Safety Report 4398170-7 (Version None)
Quarter: 2004Q3

REPORT INFORMATION
  Report Type: 
  Country: None (occurrence: None)
  Receive Date: 20040713
  Receipt Date: 20040702
  Transmission Date: 20050211
  Serious: Yes (Hospitalization)
  Sender: FDA-Public Use
  Company Number: STA-AE-04-MTX-202

PATIENT
  Age: 72 Year
  Sex: Male

DRUGS (8)
  1. METHOTREXATE [Suspect]
     Indication: PSORIATIC ARTHROPATHY
     Dosage: 20 MG 1X PER 1 WK, ORAL
     Route: 048
     Dates: start: 19971105, end: 20040501
  2. ENBREL [Suspect]
     Indication: PSORIATIC ARTHROPATHY
     Dosage: 20MG 2 X PER 1 WK, SC
     Route: 058
     Dates: start: 20040331, end: 20040501
  3. DEFLAZACORT (DEFLAZACORT) [Concomitant]
  4. ARAVA [Concomitant]
  5. DICLOFENAC (DICLOFENAC) [Concomitant]
  6. OMEPRAZOLE [Concomitant]
  7. METHYLSALAZOPYRINE (METHYLSALAZOPYRINE) [Concomitant]
  8. ENBREL [Concomitant]

REACTIONS (10)
  - BASAL CELL CARCINOMA [None]
  - BONE MARROW DEPRESSION [None]
  - DIARRHOEA HAEMORRHAGIC [None]
  - DIVERTICULITIS [None]
  - MALAISE [None]
  - MUCOSAL INFLAMMATION [None]
  - OROPHARYNGITIS FUNGAL [None]
  - PANCYTOPENIA [None]
  - PYREXIA [None]
  - RECTAL HAEMORRHAGE [None]
